FAERS Safety Report 4900305-1 (Version None)
Quarter: 2006Q1

REPORT INFORMATION
  Report Type: 
  Country: None (occurrence: None)
  Receive Date: 20060203
  Receipt Date: 20060110
  Transmission Date: 20060701
  Serious: Yes (Other)
  Sender: FDA-Public Use
  Company Number: CH-BRISTOL-MYERS SQUIBB COMPANY-13256151

PATIENT
  Age: 42 Year
  Sex: Male

DRUGS (10)
  1. ENDOXAN [Suspect]
     Indication: NON-HODGKIN'S LYMPHOMA
     Route: 042
     Dates: start: 20060110, end: 20060110
  2. VIREAD [Suspect]
     Indication: HIV INFECTION
     Route: 048
     Dates: start: 20051201
  3. STOCRIN [Concomitant]
     Dates: start: 20051201
  4. BACTRIM DS [Concomitant]
  5. EMTRIVA [Concomitant]
     Dates: start: 20051201
  6. DURAGESIC-100 [Concomitant]
  7. PRIMPERAN INJ [Concomitant]
  8. DIFLUCAN [Concomitant]
  9. TRANSIPEG [Concomitant]
  10. RITUXIMAB [Concomitant]

REACTIONS (5)
  - BLOOD BICARBONATE DECREASED [None]
  - FANCONI SYNDROME [None]
  - GLYCOSURIA [None]
  - HYPOMAGNESAEMIA [None]
  - HYPOPHOSPHATAEMIA [None]
